FAERS Safety Report 4940413-2 (Version None)
Quarter: 2006Q1

REPORT INFORMATION
  Report Type: 
  Country: None (occurrence: None)
  Receive Date: 20060127
  Receipt Date: 20050202
  Transmission Date: 20060701
  Serious: Yes (Hospitalization)
  Sender: FDA-Public Use
  Company Number: 200510357US

PATIENT
  Sex: Female

DRUGS (1)
  1. AMARYL [Suspect]
     Indication: DIABETES MELLITUS
     Dosage: 1 MG Q2D PO
     Route: 048
     Dates: start: 20030101, end: 20050101

REACTIONS (1)
  - HYPOGLYCAEMIA [None]
